FAERS Safety Report 8397570 (Version 2)
Quarter: 2013Q2

REPORT INFORMATION
  Report Type: Spontaneous
  Country: US (occurrence: US)
  Receive Date: 20120209
  Receipt Date: 20130521
  Transmission Date: 20140414
  Serious: No
  Sender: FDA-Public Use
  Company Number: US-PFIZER INC-2012030065

PATIENT
  Age: 45 Year
  Sex: Female

DRUGS (10)
  1. FLAGYL [Suspect]
     Dosage: UNK
  2. MORPHINE SULFATE [Suspect]
     Dosage: UNK
  3. CIPRO [Suspect]
     Dosage: UNK
  4. CODEINE [Suspect]
     Dosage: UNK
  5. ALBUTEROL [Suspect]
     Dosage: UNK
  6. DEMEROL [Suspect]
     Dosage: UNK
  7. DILAUDID [Suspect]
     Dosage: UNK
  8. REGLAN [Suspect]
     Dosage: UNK
  9. PERCOCET [Suspect]
     Dosage: UNK
  10. MACRODANTIN [Suspect]
     Dosage: UNK

REACTIONS (3)
  - Drug hypersensitivity [Unknown]
  - Dermatitis contact [Unknown]
  - Hypersensitivity [Unknown]
